FAERS Safety Report 9659797 (Version 2)
Quarter: 2016Q4

REPORT INFORMATION
  Report Type: Spontaneous
  Country: US (occurrence: US)
  Receive Date: 20131031
  Receipt Date: 20161129
  Transmission Date: 20170207
  Serious: No
  Sender: FDA-Public Use
  Company Number: US-PFIZER INC-2013310573

PATIENT
  Age: 72 Year
  Sex: Male

DRUGS (10)
  1. ZOFRAN [Concomitant]
     Active Substance: ONDANSETRON HYDROCHLORIDE
     Indication: NAUSEA
     Dosage: 4 MG, AS NEEDED (Q8H)
     Route: 048
  2. LOPERAMIDE [Concomitant]
     Active Substance: LOPERAMIDE
     Indication: DIARRHOEA
     Dosage: 2 MG, AS NEEDED (Q4H)
     Route: 048
  3. INLYTA [Suspect]
     Active Substance: AXITINIB
     Indication: ANAEMIA
  4. PROCHLORPERAZINE. [Concomitant]
     Active Substance: PROCHLORPERAZINE
     Indication: VOMITING
  5. SYNTHROID [Concomitant]
     Active Substance: LEVOTHYROXINE SODIUM
     Dosage: 75 UG, DAILY
     Route: 048
  6. ZOFRAN [Concomitant]
     Active Substance: ONDANSETRON HYDROCHLORIDE
     Indication: VOMITING
  7. PROCHLORPERAZINE. [Concomitant]
     Active Substance: PROCHLORPERAZINE
     Indication: NAUSEA
     Dosage: 10 MG, AS NEEDED (TID)
     Route: 048
  8. INLYTA [Suspect]
     Active Substance: AXITINIB
     Indication: METASTASES TO LIVER
  9. INLYTA [Suspect]
     Active Substance: AXITINIB
     Indication: METASTASIS
     Dosage: 5 MG, 2X/DAY (SKIPPING EVERY OTHER DAY)
     Route: 048
     Dates: start: 20130517
  10. LOMOTIL [Concomitant]
     Active Substance: ATROPINE SULFATE\DIPHENOXYLATE HYDROCHLORIDE
     Indication: DIARRHOEA
     Dosage: 1 DF, AS NEEDED (QID)
     Route: 048

REACTIONS (2)
  - Alopecia [Unknown]
  - Nail disorder [Unknown]
